FAERS Safety Report 6976798-5 (Version None)
Quarter: 2010Q3

REPORT INFORMATION
  Report Type: 
  Country: None (occurrence: None)
  Receive Date: 20100910
  Receipt Date: 20100827
  Transmission Date: 20110219
  Serious: Yes (Hospitalization, Disabling)
  Sender: FDA-Public Use
  Company Number: A0777235A

PATIENT
  Age: 46 Year
  Sex: Male

DRUGS (1)
  1. AVANDIA [Suspect]
     Indication: PRODUCT USED FOR UNKNOWN INDICATION
     Dosage: 4MG TWICE PER DAY
     Route: 048
     Dates: start: 20000101

REACTIONS (7)
  - BRADYCARDIA [None]
  - CARDIAC FAILURE CONGESTIVE [None]
  - CELLULITIS [None]
  - CONGESTIVE CARDIOMYOPATHY [None]
  - COR PULMONALE [None]
  - IMPAIRED WORK ABILITY [None]
  - MITRAL VALVE INCOMPETENCE [None]
